FAERS Safety Report 5196763-0 (Version None)
Quarter: 2006Q4

REPORT INFORMATION
  Report Type: 
  Country: None (occurrence: None)
  Receive Date: 20061229
  Receipt Date: 20061229
  Transmission Date: 20070319
  Serious: Yes (Other)
  Sender: FDA-Public Use
  Company Number: None

PATIENT
  Age: 54 Year
  Sex: Female

DRUGS (1)
  1. OMNIPAQUE 350 [Suspect]
     Indication: ABDOMINAL PAIN
     Dosage: 350 MG ONE TIME IV BOLUS
     Route: 040
     Dates: start: 20061108, end: 20061108

REACTIONS (4)
  - LIP OEDEMA [None]
  - PRURITUS [None]
  - SNEEZING [None]
  - THROAT IRRITATION [None]
